FAERS Safety Report 9589079 (Version 1)
Quarter: 2013Q4

REPORT INFORMATION
  Report Type: Spontaneous
  Country: US (occurrence: US)
  Receive Date: 20131003
  Receipt Date: 20131003
  Transmission Date: 20140711
  Serious: No
  Sender: FDA-Public Use
  Company Number: US-AMGEN-USASP2012068882

PATIENT
  Sex: Female
  Weight: 83.45 kg

DRUGS (2)
  1. ENBREL [Suspect]
     Indication: PSORIASIS
     Dosage: 50 MG, QWK
     Route: 058
  2. OMEGA-3                            /01866101/ [Concomitant]
     Dosage: UNK

REACTIONS (4)
  - Injection site mass [Unknown]
  - Head discomfort [Unknown]
  - Injection site pruritus [Unknown]
  - Injection site pain [Unknown]
